FAERS Safety Report 13818640 (Version 1)
Quarter: 2017Q3

REPORT INFORMATION
  Report Type: Report from Study
  Country: BR (occurrence: BR)
  Receive Date: 20170801
  Receipt Date: 20170801
  Transmission Date: 20171127
  Serious: Yes (Other)
  Sender: FDA-Public Use
  Company Number: PHHY2017BR112117

PATIENT
  Sex: Female
  Weight: 66 kg

DRUGS (1)
  1. ACLASTA [Suspect]
     Active Substance: ZOLEDRONIC ACID
     Indication: OSTEOPOROSIS
     Dosage: 1 DF (5MG/100ML), Q12MO
     Route: 042

REACTIONS (3)
  - Hypertension [Unknown]
  - Malaise [Unknown]
  - Blister [Unknown]
